FAERS Safety Report 7674981-7 (Version None)
Quarter: 2011Q3

REPORT INFORMATION
  Report Type: 
  Country: None (occurrence: None)
  Receive Date: 20110810
  Receipt Date: 20110808
  Transmission Date: 20111222
  Serious: Yes (Hospitalization)
  Sender: FDA-Public Use
  Company Number: PHHO2008DE14587

PATIENT
  Sex: Female
  Weight: 104 kg

DRUGS (4)
  1. CYCLOSPORINE [Suspect]
     Indication: RENAL TRANSPLANT
     Dosage: 70 MG, BID
     Dates: start: 20080802, end: 20081219
  2. EVEROLIMUS [Suspect]
     Dosage: 0.5 MG, BID
     Route: 048
     Dates: end: 20081209
  3. METHYLPREDNISOLONE [Concomitant]
     Indication: RENAL TRANSPLANT
  4. EVEROLIMUS [Suspect]
     Indication: RENAL TRANSPLANT
     Dosage: 0.75 MG, BID
     Dates: start: 20081104, end: 20081113

REACTIONS (7)
  - KIDNEY TRANSPLANT REJECTION [None]
  - CHILLS [None]
  - DYSPNOEA [None]
  - PULMONARY TOXICITY [None]
  - PNEUMONIA PRIMARY ATYPICAL [None]
  - BACTERIAL INFECTION [None]
  - COUGH [None]
